APPROVED DRUG PRODUCT: FLUOCINOLONE ACETONIDE
Active Ingredient: FLUOCINOLONE ACETONIDE
Strength: 0.01%
Dosage Form/Route: CREAM;TOPICAL
Application: A088361 | Product #001
Applicant: ALPHARMA US PHARMACEUTICALS DIVISION
Approved: Jan 16, 1984 | RLD: No | RS: No | Type: DISCN